FAERS Safety Report 18518525 (Version 1)
Quarter: 2020Q4

REPORT INFORMATION
  Report Type: Spontaneous
  Country: GB (occurrence: GB)
  Receive Date: 20201118
  Receipt Date: 20201118
  Transmission Date: 20210114
  Serious: Yes (Life-Threatening)
  Sender: FDA-Public Use
  Company Number: GB-ALLERGAN-2043995US

PATIENT
  Sex: Male
  Weight: 57 kg

DRUGS (1)
  1. DEX UNK [Suspect]
     Active Substance: UNSPECIFIED INGREDIENT
     Indication: PRODUCT USED FOR UNKNOWN INDICATION
     Dosage: UNK
     Dates: start: 20201027

REACTIONS (2)
  - Drug hypersensitivity [Unknown]
  - Application site swelling [Recovered/Resolved]

NARRATIVE: CASE EVENT DATE: 20201027
